FAERS Safety Report 21563346 (Version 1)
Quarter: 2022Q4

REPORT INFORMATION
  Report Type: Other
  Country: CA (occurrence: CA)
  Receive Date: 20221108
  Receipt Date: 20221108
  Transmission Date: 20230113
  Serious: Yes (Hospitalization, Other)
  Sender: FDA-Public Use
  Company Number: CA-APOTEX-2022AP014970

PATIENT
  Age: 55 Year
  Sex: Female
  Weight: 63 kg

DRUGS (7)
  1. TEMOZOLOMIDE [Suspect]
     Active Substance: TEMOZOLOMIDE
     Indication: Glioblastoma multiforme
     Dosage: 75 MILLIGRAM/SQ. METER
     Route: 048
  2. DEPATUXIZUMAB MAFODOTIN [Suspect]
     Active Substance: DEPATUXIZUMAB MAFODOTIN
     Indication: Glioblastoma multiforme
     Dosage: UNK, Q.O.WK.
     Route: 042
  3. BENADRYL [Concomitant]
     Active Substance: DIPHENHYDRAMINE HYDROCHLORIDE
     Indication: Ear discomfort
     Dosage: UNK, QD (EVERY 1 DAY)
     Route: 048
  4. DEXAMETHASONE [Concomitant]
     Active Substance: DEXAMETHASONE
     Indication: Prophylaxis
     Dosage: 3 MILLIGRAM, QD
     Route: 048
  5. LORAZEPAM [Concomitant]
     Active Substance: LORAZEPAM
     Indication: Prophylaxis
     Dosage: UNK, QD EVERY 1 DAY
     Route: 048
  6. PREDNISOLONE [Concomitant]
     Active Substance: PREDNISOLONE
     Indication: Prophylaxis
     Dosage: UNK, TID
     Route: 047
  7. ZANTAC [Concomitant]
     Active Substance: RANITIDINE HYDROCHLORIDE
     Indication: Prophylaxis
     Dosage: 150 MILLIGRAM, BID
     Route: 048

REACTIONS (1)
  - Pulmonary embolism [Not Recovered/Not Resolved]
